FAERS Safety Report 18233629 (Version 1)
Quarter: 2020Q3

REPORT INFORMATION
  Report Type: Spontaneous
  Country: JP (occurrence: JP)
  Receive Date: 20200904
  Receipt Date: 20200904
  Transmission Date: 20201103
  Serious: Yes (Other)
  Sender: FDA-Public Use
  Company Number: JP-SHIRE-JP202028240

PATIENT

DRUGS (3)
  1. PREDNISOLONE. [Concomitant]
     Active Substance: PREDNISOLONE
     Indication: MYASTHENIA GRAVIS
  2. HUMAN NORMAL IMMUNOGLOBULIN [Suspect]
     Active Substance: HUMAN IMMUNOGLOBULIN G
     Indication: MYASTHENIA GRAVIS
     Dosage: 400 MILLIGRAM/KILOGRAM, 1X/DAY:QD
     Route: 042
  3. PYRIDOSTIGMINE BROMIDE. [Concomitant]
     Active Substance: PYRIDOSTIGMINE BROMIDE
     Indication: MYASTHENIA GRAVIS

REACTIONS (2)
  - Prinzmetal angina [Recovering/Resolving]
  - Off label use [Unknown]
